FAERS Safety Report 7220124-3 (Version None)
Quarter: 2011Q1

REPORT INFORMATION
  Report Type: 
  Country: None (occurrence: None)
  Receive Date: 20110111
  Receipt Date: 20101230
  Transmission Date: 20110831
  Serious: Yes (Hospitalization, Other)
  Sender: FDA-Public Use
  Company Number: PHHY2010IT89592

PATIENT
  Age: 50 Year
  Sex: Female

DRUGS (3)
  1. PREDNISONE [Suspect]
  2. DOCETAXEL [Suspect]
     Indication: BREAST CANCER
     Dosage: 75 MG/M2, UNK
  3. EPIRUBICIN [Suspect]
     Indication: BREAST CANCER
     Dosage: 90 MG/M2, UNK

REACTIONS (15)
  - NEUTROPENIA [None]
  - ABDOMINAL PAIN [None]
  - MUSCLE NECROSIS [None]
  - GAS GANGRENE [None]
  - ENTEROCOLITIS [None]
  - NAUSEA [None]
  - SEPTIC SHOCK [None]
  - PYREXIA [None]
  - INFLAMMATION [None]
  - VOMITING [None]
  - LARGE INTESTINE PERFORATION [None]
  - NECROSIS [None]
  - ABDOMINAL ADHESIONS [None]
  - PERITONITIS [None]
  - PNEUMOPERITONEUM [None]
